FAERS Safety Report 10695752 (Version 3)
Quarter: 2015Q2

REPORT INFORMATION
  Report Type: Report from Study
  Country: BR (occurrence: BR)
  Receive Date: 20150107
  Receipt Date: 20150415
  Transmission Date: 20150821
  Serious: Yes (Death, Hospitalization, Other)
  Sender: FDA-Public Use
  Company Number: PHHY2015BR001012

PATIENT
  Sex: Female

DRUGS (3)
  1. OSCAL//CALCIUM [Concomitant]
     Indication: PRODUCT USED FOR UNKNOWN INDICATION
     Dosage: 2 DF, DAILY
     Route: 048
     Dates: end: 201407
  2. ACLASTA [Suspect]
     Active Substance: ZOLEDRONIC ACID
     Indication: OSTEOPOROSIS
     Dosage: ONCE A YEAR
     Route: 042
     Dates: start: 201301
  3. ACLASTA [Suspect]
     Active Substance: ZOLEDRONIC ACID
     Dosage: ONCE A YEAR
     Route: 042
     Dates: start: 201402

REACTIONS (17)
  - Eschar [Not Recovered/Not Resolved]
  - Psychogenic pain disorder [Unknown]
  - Pneumonia [Fatal]
  - Breast calcifications [Fatal]
  - Osteopenia [Recovering/Resolving]
  - Urinary incontinence [Not Recovered/Not Resolved]
  - Urinary tract infection [Not Recovered/Not Resolved]
  - Skin necrosis [Not Recovered/Not Resolved]
  - Abdominal pain [Not Recovered/Not Resolved]
  - Listless [Recovering/Resolving]
  - Depression [Not Recovered/Not Resolved]
  - Contusion [Not Recovered/Not Resolved]
  - Constipation [Not Recovered/Not Resolved]
  - Breast neoplasm [Fatal]
  - Movement disorder [Not Recovered/Not Resolved]
  - Bone pain [Not Recovered/Not Resolved]
  - Arthralgia [Not Recovered/Not Resolved]

NARRATIVE: CASE EVENT DATE: 2013
